FAERS Safety Report 24053930 (Version 1)
Quarter: 2024Q3

REPORT INFORMATION
  Report Type: Spontaneous
  Country: GB (occurrence: GB)
  Receive Date: 20240705
  Receipt Date: 20240705
  Transmission Date: 20241016
  Serious: No
  Sender: ALKEM
  Company Number: None

PATIENT
  Age: 37 Year
  Sex: Male
  Weight: 60 kg

DRUGS (1)
  1. SOLIFENACIN [Suspect]
     Active Substance: SOLIFENACIN
     Indication: Pollakiuria
     Dosage: 5 MILLIGRAM, QD (TABLET)
     Route: 065

REACTIONS (1)
  - Ejaculation disorder [Not Recovered/Not Resolved]
